FAERS Safety Report 8528691 (Version 2)
Quarter: 2015Q3

REPORT INFORMATION
  Report Type: Spontaneous
  Country: US (occurrence: US)
  Receive Date: 20120424
  Receipt Date: 20150804
  Transmission Date: 20151125
  Serious: Yes (Other)
  Sender: FDA-Public Use
  Company Number: US-ASTRAZENECA-2012SE25033

PATIENT
  Age: 46 Year
  Sex: Male

DRUGS (3)
  1. NEXIUM [Suspect]
     Active Substance: ESOMEPRAZOLE MAGNESIUM
     Indication: ULCER
     Route: 048
  2. NEXIUM [Suspect]
     Active Substance: ESOMEPRAZOLE MAGNESIUM
     Indication: ULCER
     Route: 048
     Dates: start: 2014
  3. PRILOSEC [Suspect]
     Active Substance: OMEPRAZOLE MAGNESIUM
     Route: 048

REACTIONS (10)
  - Ulcer haemorrhage [Unknown]
  - Road traffic accident [Unknown]
  - Traumatic lung injury [Unknown]
  - Malaise [Unknown]
  - Product use issue [Unknown]
  - Off label use [Unknown]
  - Drug ineffective [Unknown]
  - Rib fracture [Recovered/Resolved]
  - Back disorder [Unknown]
  - Abdominal pain upper [Unknown]

NARRATIVE: CASE EVENT DATE: 2014
